FAERS Safety Report 15985938 (Version 1)
Quarter: 2019Q1

REPORT INFORMATION
  Report Type: Spontaneous
  Country: US (occurrence: US)
  Receive Date: 20190220
  Receipt Date: 20190220
  Transmission Date: 20190418
  Serious: Yes (Other)
  Sender: FDA-Public Use
  Company Number: US-ASTRAZENECA-2018SF65244

PATIENT
  Age: 19952 Day
  Sex: Male

DRUGS (16)
  1. NEXIUM [Suspect]
     Active Substance: ESOMEPRAZOLE MAGNESIUM
     Route: 048
     Dates: start: 20120604
  2. CLONIDINE HYDROCHLORIDE. [Concomitant]
     Active Substance: CLONIDINE HYDROCHLORIDE
     Dates: start: 20140322
  3. METOCLOPRAMIDE. [Concomitant]
     Active Substance: METOCLOPRAMIDE
     Dates: start: 20120502
  4. ATENOLOL. [Concomitant]
     Active Substance: ATENOLOL
  5. LEVEMIR [Concomitant]
     Active Substance: INSULIN DETEMIR
     Dates: start: 20140322
  6. PANTOPRAZOLE SODIUM. [Concomitant]
     Active Substance: PANTOPRAZOLE SODIUM
     Dates: start: 20141226
  7. NOVOLOG [Concomitant]
     Active Substance: INSULIN ASPART
     Dates: start: 20140322
  8. CREON [Concomitant]
     Active Substance: PANCRELIPASE AMYLASE\PANCRELIPASE LIPASE\PANCRELIPASE PROTEASE
  9. LISINOPRIL. [Concomitant]
     Active Substance: LISINOPRIL
  10. GABAPENTIN. [Concomitant]
     Active Substance: GABAPENTIN
     Dates: start: 20140322
  11. HYDROCODONE-ACETAMINOPHEN [Concomitant]
     Active Substance: ACETAMINOPHEN\HYDROCODONE
     Dates: start: 20111114
  12. OMEPRAZOLE. [Concomitant]
     Active Substance: OMEPRAZOLE
     Dates: start: 20120316
  13. GABAPENTIN. [Concomitant]
     Active Substance: GABAPENTIN
  14. HUMALOG [Concomitant]
     Active Substance: INSULIN LISPRO
     Dates: start: 20120319
  15. FUROSEMIDE. [Concomitant]
     Active Substance: FUROSEMIDE
  16. DIAZEPAM. [Concomitant]
     Active Substance: DIAZEPAM
     Dates: start: 20111213

REACTIONS (6)
  - Nephrogenic anaemia [Unknown]
  - Chronic kidney disease [Unknown]
  - End stage renal disease [Unknown]
  - Acute kidney injury [Unknown]
  - Renal failure [Unknown]
  - Rebound acid hypersecretion [Unknown]

NARRATIVE: CASE EVENT DATE: 20160104
